FAERS Safety Report 5197515-8 (Version None)
Quarter: 2006Q4

REPORT INFORMATION
  Report Type: 
  Country: None (occurrence: None)
  Receive Date: 20060926
  Receipt Date: 20050830
  Transmission Date: 20070319
  Serious: Yes (Other)
  Sender: FDA-Public Use
  Company Number: 05-000522

PATIENT
  Sex: Female

DRUGS (1)
  1. DORYX [Suspect]
     Dosage: 75 MG, BID,  ORAL
     Route: 048
     Dates: start: 20050301, end: 20050601

REACTIONS (1)
  - OESOPHAGEAL ULCER [None]
